FAERS Safety Report 8663979 (Version 3)
Quarter: 2013Q4

REPORT INFORMATION
  Report Type: Report from Study
  Country: TW (occurrence: TW)
  Receive Date: 20120628
  Receipt Date: 20131101
  Transmission Date: 20140711
  Serious: Yes (Hospitalization)
  Sender: FDA-Public Use
  Company Number: TW-009507513-2012SP033794

PATIENT
  Age: 24 Year
  Sex: Female
  Weight: 61 kg

DRUGS (8)
  1. ASENAPINE MALEATE-SCHIZOPHRENIA [Suspect]
     Indication: SCHIZOPHRENIA
     Dosage: UNK UNK, BID
     Route: 060
     Dates: start: 20120514, end: 20120516
  2. ASENAPINE MALEATE-SCHIZOPHRENIA [Suspect]
     Dosage: 10 MG, BID
     Route: 060
     Dates: start: 20120517, end: 20120617
  3. TREMIN [Concomitant]
     Indication: EXTRAPYRAMIDAL DISORDER
     Dosage: DRUG FORM : UNKNOWN
     Route: 048
     Dates: start: 20120505, end: 20120521
  4. ZOLPIDEM TARTRATE [Concomitant]
     Indication: INSOMNIA
     Dosage: DRUG FORM: UNKNOWN, DOSE: 5-10 MG(ONCE DAILY)
     Route: 048
     Dates: start: 20120512
  5. ACETAMINOPHEN [Concomitant]
     Indication: HEADACHE
     Dosage: DRUG FORM: UNKNOWN
     Route: 048
     Dates: start: 20120528, end: 20120528
  6. APRAZ [Concomitant]
     Indication: ANXIETY
     Dosage: DRUG FORM: UNKNOWN, DOSE: 0.5-1 MG(DAILY)
     Route: 048
     Dates: start: 20120604, end: 20120616
  7. PROPRANOLOL HYDROCHLORIDE [Concomitant]
     Indication: AKATHISIA
     Dosage: DRUG FORM: UNKNOWN, DOSE: 10-20 MG
     Route: 048
     Dates: start: 20120607, end: 20120616
  8. LORAZEPAM [Concomitant]
     Indication: ANXIETY
     Dosage: 1 MG, QD
     Route: 048
     Dates: start: 20120507

REACTIONS (1)
  - Schizophrenia [Recovered/Resolved]
